FAERS Safety Report 5565105-0 (Version None)
Quarter: 2007Q4

REPORT INFORMATION
  Report Type: 
  Country: None (occurrence: None)
  Receive Date: 20071218
  Receipt Date: 20071218
  Transmission Date: 20080405
  Serious: Yes (Other)
  Sender: FDA-Public Use
  Company Number: PHHO2007DK05513

PATIENT
  Age: 81 Year
  Sex: Male
  Weight: 71 kg

DRUGS (21)
  1. ZOLEDRONIC ACID [Suspect]
     Indication: OSTEOPOROTIC FRACTURE
     Dosage: 5MG, ONCE YEARLY
  2. ZOLEDRONIC ACID [Suspect]
     Dosage: DOUBLE BLINDED
     Route: 042
     Dates: start: 20040510
  3. CALCIUM CARBONATE [Concomitant]
     Indication: OSTEOPOROTIC FRACTURE
  4. VITAMIN D [Concomitant]
     Indication: OSTEOPOROTIC FRACTURE
  5. CENTYL [Concomitant]
  6. MAGNYL [Concomitant]
  7. JERN C [Concomitant]
  8. UNIAKUM TABLETS [Concomitant]
  9. PREDNISONE [Concomitant]
  10. NEXIUM [Concomitant]
  11. SPIRIVA [Concomitant]
  12. OXIS [Concomitant]
  13. PULMICORT [Concomitant]
  14. TERBASMIN [Concomitant]
  15. POTASSIUM CHLORIDE [Concomitant]
  16. FURIX [Concomitant]
  17. SELEXID [Concomitant]
  18. MAGNESIA [Concomitant]
  19. LAXOBERAL [Concomitant]
  20. BRICANYL [Concomitant]
  21. SPIROCORT [Concomitant]

REACTIONS (2)
  - BASAL CELL CARCINOMA [None]
  - SKIN NEOPLASM EXCISION [None]
